FAERS Safety Report 8381412 (Version 4)
Quarter: 2013Q1

REPORT INFORMATION
  Report Type: Spontaneous
  Country: US (occurrence: US)
  Receive Date: 20120131
  Receipt Date: 20130206
  Transmission Date: 20140127
  Serious: Yes (Other)
  Sender: FDA-Public Use
  Company Number: US-PFIZER INC-2012020701

PATIENT
  Sex: Female

DRUGS (2)
  1. EFFEXOR XR [Suspect]
     Indication: MULTIPLE SCLEROSIS
     Dosage: 150 (NO UNITS PROVIDED), UNK
     Dates: start: 2006
  2. EFFEXOR XR [Suspect]
     Indication: DEPRESSION

REACTIONS (4)
  - Off label use [Unknown]
  - Drug dependence [Unknown]
  - Anxiety [Unknown]
  - Stress [Unknown]
